FAERS Safety Report 6923231-5 (Version None)
Quarter: 2010Q3

REPORT INFORMATION
  Report Type: 
  Country: None (occurrence: None)
  Receive Date: 20100811
  Receipt Date: 20100727
  Transmission Date: 20110219
  Serious: Yes (Death)
  Sender: FDA-Public Use
  Company Number: A-US2010-38221

PATIENT
  Age: 48 Year
  Sex: Female

DRUGS (2)
  1. VENTAVIS [Suspect]
     Indication: PULMONARY ARTERIAL HYPERTENSION
     Dosage: RESPIRATORY
     Dates: start: 20100226, end: 20100101
  2. VIAGRA [Concomitant]

REACTIONS (4)
  - CONDITION AGGRAVATED [None]
  - CYSTIC FIBROSIS LUNG [None]
  - OFF LABEL USE [None]
  - RESPIRATORY FAILURE [None]
